FAERS Safety Report 6991740-9 (Version None)
Quarter: 2010Q3

REPORT INFORMATION
  Report Type: 
  Country: None (occurrence: None)
  Receive Date: 20100915
  Receipt Date: 20100915
  Transmission Date: 20110219
  Serious: No
  Sender: FDA-Public Use
  Company Number: None

PATIENT
  Age: 56 Year
  Sex: Female
  Weight: 89.3586 kg

DRUGS (2)
  1. OXYCONTIN [Suspect]
     Dosage: ONE 4 TIMES DAILY PO
     Route: 048
  2. OXYCONTIN [Suspect]
     Dosage: ONE 4 TIMES DAILY PO
     Route: 048

REACTIONS (6)
  - ABDOMINAL PAIN UPPER [None]
  - BACK PAIN [None]
  - DIARRHOEA [None]
  - NAUSEA [None]
  - PAIN [None]
  - PRODUCT SUBSTITUTION ISSUE [None]
